FAERS Safety Report 9913811 (Version 1)
Quarter: 2014Q1

REPORT INFORMATION
  Report Type: Spontaneous
  Country: US (occurrence: None)
  Receive Date: 20140218
  Receipt Date: 20140218
  Transmission Date: 20141002
  Serious: Yes (Other)
  Sender: FDA-Public Use
  Company Number: None

PATIENT
  Age: 49 Year
  Sex: Male
  Weight: 73.94 kg

DRUGS (1)
  1. LAMOTRIGINE [Suspect]

REACTIONS (2)
  - Product substitution issue [None]
  - Convulsion [None]
